FAERS Safety Report 7578622-9 (Version None)
Quarter: 2011Q2

REPORT INFORMATION
  Report Type: 
  Country: None (occurrence: None)
  Receive Date: 20110628
  Receipt Date: 20110613
  Transmission Date: 20111010
  Serious: Yes (Other)
  Sender: FDA-Public Use
  Company Number: PHHY2011CA52174

PATIENT
  Sex: Female

DRUGS (3)
  1. PREMARIN [Concomitant]
     Dosage: UNK
  2. CALCIUM WITH VITAMIN D [Concomitant]
     Dosage: UNK
  3. ZOLEDRONIC ACID [Suspect]
     Indication: OSTEOPOROSIS
     Dosage: 5 MG, UNK
     Route: 042
     Dates: start: 20100607

REACTIONS (1)
  - BREAST CANCER [None]
